FAERS Safety Report 13777391 (Version 1)
Quarter: 2017Q3

REPORT INFORMATION
  Report Type: Other
  Country: RU (occurrence: RU)
  Receive Date: 20170721
  Receipt Date: 20170721
  Transmission Date: 20171127
  Serious: Yes (Other)
  Sender: FDA-Public Use
  Company Number: RU-HIKMA PHARMACEUTICALS CO. LTD-2017RU009500

PATIENT

DRUGS (1)
  1. FLAMMEGIS [Suspect]
     Active Substance: INFLIXIMAB
     Indication: PRODUCT USED FOR UNKNOWN INDICATION
     Dosage: UNK
     Route: 042

REACTIONS (2)
  - Choking [Recovered/Resolved]
  - Hypoaesthesia [Recovered/Resolved]
